FAERS Safety Report 14044421 (Version 1)
Quarter: 2017Q4

REPORT INFORMATION
  Report Type: Spontaneous
  Country: CA (occurrence: CA)
  Receive Date: 20171004
  Receipt Date: 20171004
  Transmission Date: 20180321
  Serious: Yes (Hospitalization)
  Sender: FDA-Public Use
  Company Number: None

PATIENT
  Age: 74 Year
  Sex: Male
  Weight: 77.1 kg

DRUGS (1)
  1. ADRUCIL [Suspect]
     Active Substance: FLUOROURACIL
     Indication: COLON CANCER METASTATIC
     Dosage: ?          OTHER FREQUENCY:INFUSION OVER 46HR;INTRAVENOUS (NOT OTHERWISE SPECIFIED)
     Route: 042
     Dates: start: 20170811, end: 20170813

REACTIONS (5)
  - Dyspnoea [None]
  - Middle insomnia [None]
  - Chest pain [None]
  - Pain [None]
  - Arteriospasm coronary [None]

NARRATIVE: CASE EVENT DATE: 20170813
